FAERS Safety Report 22052730 (Version 1)
Quarter: 2023Q1

REPORT INFORMATION
  Report Type: Report from Study
  Country: IT (occurrence: IT)
  Receive Date: 20230302
  Receipt Date: 20230302
  Transmission Date: 20230418
  Serious: Yes (Hospitalization, Other)
  Sender: FDA-Public Use
  Company Number: None

PATIENT
  Age: 68 Year
  Sex: Male

DRUGS (13)
  1. PREDNISONE [Suspect]
     Active Substance: PREDNISONE
     Indication: Immunosuppression
     Dosage: 1 MG/KG DAILY; DOSAGE: 1, UNIT OF MEASURE: MILLIGRAMS, FOR: PER KG OF BODY WEIGHT, FREQUENCY OF ADMI
     Route: 048
  2. TRIMETHOPRIM/SULFAMETOXAZOLE [Concomitant]
     Indication: Bacterial infection
     Dosage: DOSAGE: 2, UNIT OF MEASURE: DOSING UNIT, ROUTE OF ADMINISTRATION: ORAL
     Route: 048
  3. LAMIVUDINE [Concomitant]
     Active Substance: LAMIVUDINE
     Indication: Hepatitis B
     Dosage: DOSAGE: 2, UNIT OF MEASURE: DOSING UNIT, ROUTE OF ADMINISTRATION: ORAL
     Route: 048
  4. PREGABALIN [Concomitant]
     Active Substance: PREGABALIN
     Indication: Neuralgia
     Dosage: DOSAGE: 2, UNIT OF MEASURE: DOSING UNIT, ROUTE OF ADMINISTRATION: ORAL
     Route: 048
  5. ENOXAPARIN SODIUM [Concomitant]
     Active Substance: ENOXAPARIN SODIUM
     Indication: Deep vein thrombosis
     Dosage: DOSAGE: 1, UNIT OF MEASURE: DOSING UNIT, ROUTE OF ADMINISTRATION: SUBCUTANEOUS
     Route: 058
  6. ACYCLOVIR [Concomitant]
     Active Substance: ACYCLOVIR
     Indication: Herpes simplex
     Dosage: DOSAGE: 400, UNIT OF MEASURE: MILLIGRAMS, ROUTE OF ADMINISTRATION: ORAL
     Route: 048
  7. FLUCONAZOLE [Concomitant]
     Active Substance: FLUCONAZOLE
     Indication: Fungal infection
     Dosage: DOSAGE: 2, UNIT OF MEASURE: DOSING UNIT, ROUTE OF ADMINISTRATION: ORAL
     Route: 048
  8. POLYENOIC OMEGAS (ETHYL ESTERS OF POLYUNSATURATED FATTY ACIDS) [Concomitant]
     Indication: Hypertriglyceridaemia
     Dosage: DOSAGE: 3, UNIT OF MEASURE: DOSING UNIT, ROUTE OF ADMINISTRATION: ORAL
     Route: 048
  9. TAMSULOSIN HYDROCHLORIDE [Concomitant]
     Active Substance: TAMSULOSIN HYDROCHLORIDE
     Indication: Benign prostatic hyperplasia
     Dosage: DOSAGE: 1, UNIT OF MEASURE: DOSING UNIT, ROUTE OF ADMINISTRATION: ORAL
     Route: 048
  10. CHOLECALCIFEROL [Concomitant]
     Active Substance: CHOLECALCIFEROL
     Indication: Vitamin D deficiency
     Dosage: DOSAGE: 1, UNIT OF MEASURE: DOSING UNIT, ROUTE OF ADMINISTRATION: ORAL
     Route: 048
  11. FILGRASTIM [Concomitant]
     Active Substance: FILGRASTIM
     Indication: Neutropenia
     Dosage: DOSAGE: 1, UNIT OF MEASURE: DOSING UNIT
  12. ACETAMINOPHEN AND CODEINE [Concomitant]
     Active Substance: ACETAMINOPHEN\CODEINE PHOSPHATE
     Indication: Pain
     Dosage: DOSAGE: 1, UNIT OF MEASURE: DOSING UNIT, ROUTE OF ADMINISTRATION: ORAL
     Route: 048
  13. OMEPRAZOLE [Concomitant]
     Active Substance: OMEPRAZOLE
     Indication: Ulcer
     Dosage: DOSAGE: 1, UNIT OF MEASURE: DOSING UNIT, ROUTE OF ADMINISTRATION: ORAL
     Route: 048

REACTIONS (2)
  - Steroid diabetes [Recovering/Resolving]
  - Acetonaemia [Recovering/Resolving]

NARRATIVE: CASE EVENT DATE: 20220726
